FAERS Safety Report 9632418 (Version 1)
Quarter: 2013Q4

REPORT INFORMATION
  Report Type: Spontaneous
  Country: US (occurrence: US)
  Receive Date: 20131018
  Receipt Date: 20131018
  Transmission Date: 20140711
  Serious: Yes (Hospitalization)
  Sender: FDA-Public Use
  Company Number: US-PFIZER INC-2013296679

PATIENT
  Age: 60 Year
  Sex: Female

DRUGS (2)
  1. CELEBREX [Suspect]
     Dosage: UNK
  2. RANEXA [Suspect]
     Indication: ANGINA PECTORIS
     Dosage: 500 MG, UNK
     Route: 048

REACTIONS (3)
  - Dyspnoea [Unknown]
  - Chest pain [Unknown]
  - Renal disorder [Unknown]
